FAERS Safety Report 5590409-5 (Version None)
Quarter: 2008Q1

REPORT INFORMATION
  Report Type: 
  Country: None (occurrence: None)
  Receive Date: 20080114
  Receipt Date: 20070724
  Transmission Date: 20080703
  Serious: No
  Sender: FDA-Public Use
  Company Number: US-ABBOTT-07P-163-0375748-00

PATIENT
  Sex: Female

DRUGS (2)
  1. TERAZOSIN HCL [Suspect]
     Indication: DRUG USE FOR UNKNOWN INDICATION
     Route: 048
     Dates: start: 20070701, end: 20070701
  2. TERAZOSIN HCL [Suspect]

REACTIONS (1)
  - FATIGUE [None]
